FAERS Safety Report 6598089-7 (Version None)
Quarter: 2010Q1

REPORT INFORMATION
  Report Type: 
  Country: None (occurrence: None)
  Receive Date: 20100216
  Receipt Date: 20100205
  Transmission Date: 20100710
  Serious: Yes (Hospitalization)
  Sender: FDA-Public Use
  Company Number: 2010SP007498

PATIENT
  Age: 92 Year
  Sex: Female

DRUGS (15)
  1. DESLORATADINE [Suspect]
     Indication: PRURITUS
     Dosage: 5 MG, QD; PO
     Route: 048
     Dates: start: 20091211, end: 20100113
  2. PERINDOPRIL ERBUMINE [Suspect]
     Indication: HYPERTENSION
     Dosage: 10 MG, QD, PO
     Route: 048
     Dates: start: 20100103, end: 20100113
  3. AMOXICILLIN [Suspect]
     Indication: DRUG USE FOR UNKNOWN INDICATION
     Dosage: 500 MG, BID, PO
     Route: 048
     Dates: start: 20100104, end: 20100113
  4. DIMETANE [Suspect]
     Indication: ANTITUSSIVE THERAPY
     Dosage: PRN; PO
     Route: 048
     Dates: start: 20100104, end: 20100113
  5. BISOPROLOL FUMARATE [Suspect]
     Indication: HYPERTENSION
     Dosage: 10 MG, QD; PO
     Route: 048
     Dates: start: 20091221, end: 20100113
  6. DITROPAN [Suspect]
     Indication: URINARY INCONTINENCE
     Dosage: 5 MG, BID; PO
     Route: 048
     Dates: start: 20091211, end: 20100113
  7. PROPOFAN (PROPOFAN) [Suspect]
     Indication: ANALGESIC INTERVENTION SUPPORTIVE THERAPY
     Dosage: PRN; PO
     Route: 048
     Dates: start: 20091211, end: 20100113
  8. LEXOMIL   (BROMAZEPAM) [Suspect]
     Indication: ANXIETY
     Dosage: PRN, PO
     Route: 048
     Dates: start: 20090819, end: 20100113
  9. DEBRIDAT [Concomitant]
  10. VASTAREL [Concomitant]
  11. COAPROVEL [Concomitant]
  12. PRITORPLUS [Concomitant]
  13. CRESTOR [Concomitant]
  14. CERVOXAN [Concomitant]
  15. MOTILIUM [Concomitant]

REACTIONS (6)
  - HYPEREOSINOPHILIC SYNDROME [None]
  - PROTEINURIA [None]
  - RASH ERYTHEMATOUS [None]
  - RASH MACULO-PAPULAR [None]
  - RASH PRURITIC [None]
  - SKIN EXFOLIATION [None]
